FAERS Safety Report 9404028 (Version 1)
Quarter: 2013Q3

REPORT INFORMATION
  Report Type: Report from Study
  Country: US (occurrence: US)
  Receive Date: 20130717
  Receipt Date: 20130717
  Transmission Date: 20140515
  Serious: Yes (Other)
  Sender: FDA-Public Use
  Company Number: US-JNJFOC-20130702683

PATIENT
  Age: 50 Year
  Sex: Male
  Weight: 77.11 kg

DRUGS (10)
  1. REMICADE [Suspect]
     Indication: CROHN^S DISEASE
     Dosage: STARTED ABOUT 2 OR 3 YEARS AGO
     Route: 042
  2. REMICADE [Suspect]
     Indication: CROHN^S DISEASE
     Dosage: STARTED ABOUT 2 OR 3 YEARS AGO
     Route: 042
  3. REMICADE [Suspect]
     Indication: CROHN^S DISEASE
     Dosage: DOSE DOUBLED, 10/100 PER KG/SOLUTION, 10/100 PER KG/ 6 TREATMENTS PER YEAR/ INTRAVENOUS
     Route: 042
     Dates: start: 20130615
  4. FLEXERIL [Concomitant]
     Indication: MUSCLE RELAXANT THERAPY
     Dosage: AS NEEDED
     Route: 048
  5. ASPIRIN [Concomitant]
     Indication: MYOCARDIAL INFARCTION
     Dosage: ONE EVERY OTHER MORNING
     Route: 048
  6. DOXEPIN [Concomitant]
     Indication: DEPRESSION
     Route: 048
  7. ZOCOR [Concomitant]
     Indication: BLOOD CHOLESTEROL
     Route: 048
  8. KLONOPIN [Concomitant]
     Indication: PANIC ATTACK
     Route: 048
  9. VICODIN [Concomitant]
     Indication: PAIN MANAGEMENT
     Dosage: 5/500MG ONE TO TWO PILLS FOUR TO SIX TIMES A DAY AS NEEDED
     Route: 048
  10. CLINDAMYCIN [Concomitant]
     Indication: MEDICAL DEVICE IMPLANTATION
     Dosage: STRENGTH: 150 MG, TAKEN 4 BEFORE ANY MEDICAL OR DENTAL PROCEDURE
     Route: 048

REACTIONS (6)
  - Rectal haemorrhage [Recovered/Resolved]
  - Tooth fracture [Recovered/Resolved]
  - Tooth disorder [Not Recovered/Not Resolved]
  - Faeces discoloured [Recovered/Resolved]
  - Condition aggravated [Not Recovered/Not Resolved]
  - Muscle spasms [Unknown]
